FAERS Safety Report 22638132 (Version 1)
Quarter: 2023Q2

REPORT INFORMATION
  Report Type: Spontaneous
  Country: CA (occurrence: CA)
  Receive Date: 20230626
  Receipt Date: 20230626
  Transmission Date: 20230721
  Serious: Yes (Other)
  Sender: FDA-Public Use
  Company Number: CA-PFIZER INC-202200668791

PATIENT
  Age: 80 Year
  Sex: Female

DRUGS (1)
  1. VYNDAMAX [Suspect]
     Active Substance: TAFAMIDIS
     Indication: Cardiac amyloidosis
     Dosage: 61 MG, 1X/DAY
     Route: 048
     Dates: start: 20220429

REACTIONS (6)
  - Blood pressure increased [Unknown]
  - Brain fog [Not Recovered/Not Resolved]
  - Dizziness [Unknown]
  - Acne [Unknown]
  - Diarrhoea [Recovering/Resolving]
  - Hyperaesthesia [Unknown]

NARRATIVE: CASE EVENT DATE: 20220101
